FAERS Safety Report 7939838-2 (Version None)
Quarter: 2011Q4

REPORT INFORMATION
  Report Type: 
  Country: None (occurrence: None)
  Receive Date: 20111125
  Receipt Date: 20111122
  Transmission Date: 20120403
  Serious: Yes (Life-Threatening, Hospitalization)
  Sender: FDA-Public Use
  Company Number: PHHY2011FR102519

PATIENT
  Age: 62 Year
  Sex: Female

DRUGS (2)
  1. GLEEVEC [Suspect]
     Indication: CHRONIC MYELOID LEUKAEMIA
     Dosage: 1 DF, DAILY
     Route: 048
  2. BETA BLOCKING AGENTS [Concomitant]

REACTIONS (1)
  - AGRANULOCYTOSIS [None]
